FAERS Safety Report 6021067-3 (Version None)
Quarter: 2008Q4

REPORT INFORMATION
  Report Type: 
  Country: None (occurrence: None)
  Receive Date: 20081229
  Receipt Date: 20081215
  Transmission Date: 20090506
  Serious: Yes (Other)
  Sender: FDA-Public Use
  Company Number: AU-PFIZER INC-2008158056

PATIENT

DRUGS (6)
  1. ATORVASTATIN CALCIUM [Suspect]
     Dosage: UNK
  2. METOPROLOL SUCCINATE [Suspect]
     Dosage: UNK
  3. OMEPRAZOLE [Suspect]
     Dosage: UNK
  4. RAMIPRIL [Suspect]
     Dosage: UNK
  5. TRAMADOL HCL [Suspect]
     Dosage: UNK
  6. ALLOPURINOL [Concomitant]
     Dosage: UNK

REACTIONS (2)
  - ANGIOEDEMA [None]
  - RASH [None]
